FAERS Safety Report 10243765 (Version 1)
Quarter: 2014Q2

REPORT INFORMATION
  Report Type: Spontaneous
  Country: AU (occurrence: None)
  Receive Date: 20140616
  Receipt Date: 20140616
  Transmission Date: 20141212
  Serious: Yes (Death, Hospitalization)
  Sender: FDA-Public Use
  Company Number: FK201402345

PATIENT
  Age: 45 Year
  Sex: Male

DRUGS (5)
  1. METHOTREXATE (METHOTREXATE) [Suspect]
     Indication: BONE MARROW TRANSPLANT
  2. CYCLOSPORIN [Suspect]
     Indication: BONE MARROW TRANSPLANT
  3. THYMOGLOBULIN [Suspect]
     Indication: BONE MARROW TRANSPLANT
  4. FLUDARABINE  (FLUDARABINE) [Concomitant]
  5. BUSULPHAN (BUSULFAN) [Concomitant]

REACTIONS (10)
  - Post transplant lymphoproliferative disorder [None]
  - Multi-organ failure [None]
  - Graft versus host disease [None]
  - Clostridium difficile infection [None]
  - Gastroenteritis norovirus [None]
  - Pancytopenia [None]
  - Cytomegalovirus infection [None]
  - Rash [None]
  - Liver function test abnormal [None]
  - Lactic acidosis [None]
